FAERS Safety Report 14941914 (Version 3)
Quarter: 2018Q3

REPORT INFORMATION
  Report Type: Spontaneous
  Country: US (occurrence: US)
  Receive Date: 20180527
  Receipt Date: 20180705
  Transmission Date: 20181010
  Serious: Yes (Other)
  Sender: FDA-Public Use
  Company Number: US-NOVOPROD-601661

PATIENT
  Age: 73 Year
  Sex: Female

DRUGS (1)
  1. NOVOLOG [Suspect]
     Active Substance: INSULIN ASPART
     Indication: TYPE 2 DIABETES MELLITUS
     Dosage: 10 U, TID BEFORE MEALS
     Route: 058
     Dates: start: 20140709

REACTIONS (1)
  - Retinal vascular occlusion [Recovered/Resolved]

NARRATIVE: CASE EVENT DATE: 20151106
